FAERS Safety Report 7445302-X (Version None)
Quarter: 2011Q2

REPORT INFORMATION
  Report Type: 
  Country: None (occurrence: None)
  Receive Date: 20110429
  Receipt Date: 20110321
  Transmission Date: 20111010
  Serious: Yes (Other)
  Sender: FDA-Public Use
  Company Number: US-BAYER-201034244NA

PATIENT
  Age: 25 Year
  Sex: Female
  Weight: 89.342 kg

DRUGS (7)
  1. LISINOPRIL [Concomitant]
     Dosage: UNK
     Dates: start: 20050101
  2. ASPIRIN [Concomitant]
     Dosage: UNK
     Dates: start: 20060103
  3. YAZ [Suspect]
  4. YASMIN [Suspect]
     Dosage: UNK
  5. PAXIL [Concomitant]
  6. ACE INHIBITOR NOS [Concomitant]
  7. ATIVAN [Concomitant]

REACTIONS (2)
  - TRANSVERSE SINUS THROMBOSIS [None]
  - CEREBRAL THROMBOSIS [None]
